FAERS Safety Report 5334699-2 (Version None)
Quarter: 2007Q2

REPORT INFORMATION
  Report Type: 
  Country: None (occurrence: None)
  Receive Date: 20070525
  Receipt Date: 20070515
  Transmission Date: 20071010
  Serious: Yes (Death)
  Sender: FDA-Public Use
  Company Number: FR-JNJFOC-20070506055

PATIENT

DRUGS (1)
  1. INFLIXIMAB [Suspect]
     Indication: TRANSMISSION OF DRUG VIA SEMEN

REACTIONS (1)
  - INTRA-UTERINE DEATH [None]
